FAERS Safety Report 10150140 (Version 1)
Quarter: 2014Q2

REPORT INFORMATION
  Report Type: Spontaneous
  Country: US (occurrence: US)
  Receive Date: 20140502
  Receipt Date: 20140502
  Transmission Date: 20141212
  Serious: Yes (Hospitalization)
  Sender: FDA-Public Use
  Company Number: US-GLAXOSMITHKLINE-A1071622A

PATIENT
  Age: 58 Year
  Sex: Female

DRUGS (1)
  1. PROMACTA [Suspect]
     Indication: PRODUCT USED FOR UNKNOWN INDICATION
     Dosage: 25MG UNKNOWN
     Route: 065

REACTIONS (5)
  - Chronic lymphocytic leukaemia [Unknown]
  - Lymphocytic lymphoma [Unknown]
  - Neuropsychiatric lupus [Unknown]
  - Immune thrombocytopenic purpura [Unknown]
  - Platelet transfusion [Unknown]
